FAERS Safety Report 10507407 (Version 2)
Quarter: 2014Q4

REPORT INFORMATION
  Report Type: Spontaneous
  Country: DE (occurrence: DE)
  Receive Date: 20141009
  Receipt Date: 20141009
  Transmission Date: 20150528
  Serious: Yes (Other)
  Sender: FDA-Public Use
  Company Number: DE-MYLANLABS-2014S1009890

PATIENT

DRUGS (1)
  1. PAROXETINE [Suspect]
     Active Substance: PAROXETINE\PAROXETINE HYDROCHLORIDE
     Indication: OBSESSIVE-COMPULSIVE DISORDER
     Dosage: 20 MG,QD
     Route: 048

REACTIONS (4)
  - Disorientation [Not Recovered/Not Resolved]
  - Frontotemporal dementia [Not Recovered/Not Resolved]
  - Apathy [Not Recovered/Not Resolved]
  - Memory impairment [Not Recovered/Not Resolved]
